FAERS Safety Report 18407274 (Version 1)
Quarter: 2020Q4

REPORT INFORMATION
  Report Type: Spontaneous
  Country: US (occurrence: US)
  Receive Date: 20201021
  Receipt Date: 20201021
  Transmission Date: 20210114
  Serious: Yes (Other)
  Sender: FDA-Public Use
  Company Number: US-ROCHE-2696863

PATIENT
  Sex: Female
  Weight: 60 kg

DRUGS (1)
  1. TAMIFLU [Suspect]
     Active Substance: OSELTAMIVIR PHOSPHATE
     Indication: PRODUCT USED FOR UNKNOWN INDICATION
     Route: 065

REACTIONS (4)
  - Transaminases increased [Unknown]
  - Drug reaction with eosinophilia and systemic symptoms [Unknown]
  - Myocarditis [Unknown]
  - Lung infiltration [Unknown]
